FAERS Safety Report 8585882-4 (Version None)
Quarter: 2012Q3

REPORT INFORMATION
  Report Type: 
  Country: None (occurrence: None)
  Receive Date: 20120802
  Receipt Date: 20120802
  Transmission Date: 20120928
  Serious: Yes (Disabling, Other)
  Sender: FDA-Public Use
  Company Number: None

PATIENT
  Age: 36 Year
  Sex: Female
  Weight: 77.1115 kg

DRUGS (1)
  1. SAPHRIS [Suspect]
     Indication: SCHIZOAFFECTIVE DISORDER
     Dosage: MAINLY 5 MG -7.5 MG RARELY- ONCE A DAY PO
     Route: 048
     Dates: start: 20110804, end: 20120713

REACTIONS (9)
  - CHEST DISCOMFORT [None]
  - CONSTIPATION [None]
  - TEMPERATURE INTOLERANCE [None]
  - ABDOMINAL PAIN [None]
  - MUSCULOSKELETAL STIFFNESS [None]
  - PARALYSIS [None]
  - DIZZINESS [None]
  - PAIN IN EXTREMITY [None]
  - TREMOR [None]
